FAERS Safety Report 9818493 (Version 1)
Quarter: 2014Q1

REPORT INFORMATION
  Report Type: Spontaneous
  Country: US (occurrence: US)
  Receive Date: 20140115
  Receipt Date: 20140115
  Transmission Date: 20141002
  Serious: No
  Sender: FDA-Public Use
  Company Number: US-009507513-1401USA006134

PATIENT
  Sex: Male

DRUGS (1)
  1. VYTORIN [Suspect]
     Dosage: 10-20MG

REACTIONS (1)
  - Drug hypersensitivity [Unknown]
